FAERS Safety Report 18461652 (Version 3)
Quarter: 2020Q4

REPORT INFORMATION
  Report Type: Spontaneous
  Country: US (occurrence: US)
  Receive Date: 20201104
  Receipt Date: 20201211
  Transmission Date: 20210114
  Serious: Yes (Other)
  Sender: FDA-Public Use
  Company Number: US-ELI_LILLY_AND_COMPANY-US202010011715

PATIENT
  Age: 58 Year
  Sex: Male

DRUGS (3)
  1. HUMALOG [Suspect]
     Active Substance: INSULIN LISPRO
     Dosage: 10 U, TID (THREE TIMES A DAY WITH MEALS)
     Route: 065
     Dates: start: 20200123
  2. HUMALOG [Suspect]
     Active Substance: INSULIN LISPRO
     Indication: TYPE 2 DIABETES MELLITUS
     Dosage: 10 U, TID (THREE TIMES A DAY WITH MEALS)
     Route: 065
     Dates: start: 2018
  3. LEVEMIR [Concomitant]
     Active Substance: INSULIN DETEMIR
     Indication: TYPE 2 DIABETES MELLITUS

REACTIONS (6)
  - Pancreatic failure [Recovering/Resolving]
  - Visual impairment [Recovering/Resolving]
  - Product dose omission issue [Unknown]
  - Blood glucose decreased [Recovering/Resolving]
  - Pancreatic cyst [Recovering/Resolving]
  - COVID-19 [Unknown]

NARRATIVE: CASE EVENT DATE: 2018
